FAERS Safety Report 20896299 (Version 1)
Quarter: 2022Q2

REPORT INFORMATION
  Report Type: Report from Study
  Country: US (occurrence: US)
  Receive Date: 20220531
  Receipt Date: 20220531
  Transmission Date: 20220721
  Serious: No
  Sender: FDA-Public Use
  Company Number: US-Ipsen Biopharmaceuticals, Inc.-2022-14943

PATIENT
  Sex: Male

DRUGS (1)
  1. SOMATULINE DEPOT [Suspect]
     Active Substance: LANREOTIDE ACETATE
     Indication: Carcinoid tumour
     Dosage: 90 MG/0.3ML
     Route: 058
     Dates: start: 201911

REACTIONS (3)
  - Injection site pain [Recovering/Resolving]
  - Injection site nodule [Recovering/Resolving]
  - Hypersomnia [Recovering/Resolving]
